FAERS Safety Report 8486665 (Version 2)
Quarter: 2013Q3

REPORT INFORMATION
  Report Type: Report from Study
  Country: US (occurrence: US)
  Receive Date: 20120402
  Receipt Date: 20130725
  Transmission Date: 20140515
  Serious: Yes (Hospitalization)
  Sender: FDA-Public Use
  Company Number: US-SANOFI-AVENTIS-2012SA019921

PATIENT
  Age: 76 Year
  Sex: Male
  Weight: 84.55 kg

DRUGS (14)
  1. DOCETAXEL [Suspect]
     Indication: PROSTATE CANCER
     Route: 041
     Dates: start: 20110429, end: 20110429
  2. DOCETAXEL [Suspect]
     Indication: PROSTATE CANCER
     Route: 041
     Dates: start: 20111123, end: 20111123
  3. ANTINEOPLASTIC AGENTS [Suspect]
     Indication: PROSTATE CANCER
     Route: 042
  4. IMIPRAMINE HYDROCHLORIDE [Concomitant]
     Indication: MIGRAINE
     Route: 048
  5. WARFARIN SODIUM [Concomitant]
     Route: 048
  6. WARFARIN SODIUM [Concomitant]
     Route: 048
  7. ONDANSETRON [Concomitant]
     Route: 048
  8. ESOMEPRAZOLE MAGNESIUM [Concomitant]
     Route: 048
     Dates: start: 20110331
  9. PROMETHAZINE [Concomitant]
     Route: 048
     Dates: start: 20110404
  10. ALL OTHER THERAPEUTIC PRODUCTS [Concomitant]
     Route: 048
  11. AMOXICILLIN [Concomitant]
     Route: 048
     Dates: start: 20110909
  12. PREDNISONE [Concomitant]
     Route: 048
     Dates: start: 20111020
  13. METHYLPREDNISOLONE [Concomitant]
     Route: 048
     Dates: start: 20110920
  14. ENOXAPARIN SODIUM [Concomitant]
     Route: 058

REACTIONS (2)
  - Cholecystitis [Recovered/Resolved]
  - Respiratory failure [Unknown]
